FAERS Safety Report 8546876-8 (Version None)
Quarter: 2012Q3

REPORT INFORMATION
  Report Type: 
  Country: None (occurrence: None)
  Receive Date: 20120727
  Receipt Date: 20120208
  Transmission Date: 20120928
  Serious: No
  Sender: FDA-Public Use
  Company Number: US-ASTRAZENECA-2012SE02969

PATIENT
  Age: 86 Year
  Sex: Female

DRUGS (3)
  1. SEROQUEL [Suspect]
     Dosage: THREE IN THE MORNING AND FOUR IN THE EVENING
     Route: 048
  2. SEROQUEL [Suspect]
     Route: 048
  3. SEROQUEL [Suspect]
     Route: 048

REACTIONS (6)
  - KIDNEY INFECTION [None]
  - CARDIAC DISORDER [None]
  - ABNORMAL BEHAVIOUR [None]
  - DRUG DOSE OMISSION [None]
  - MALAISE [None]
  - DEMENTIA ALZHEIMER'S TYPE [None]
